FAERS Safety Report 5451882-6 (Version None)
Quarter: 2007Q3

REPORT INFORMATION
  Report Type: 
  Country: None (occurrence: None)
  Receive Date: 20070912
  Receipt Date: 20070827
  Transmission Date: 20080115
  Serious: Yes (Death, Life-Threatening)
  Sender: FDA-Public Use
  Company Number: 2007JP003874

PATIENT
  Sex: Male

DRUGS (13)
  1. TACROLIMUS [Suspect]
     Indication: RHEUMATOID ARTHRITIS
     Dosage: 1 MG, UID/QD, ORAL, 1.5 MG, UID/QD, ORAL, 2 MG, UID/QD, ORAL
     Route: 048
     Dates: start: 20060819, end: 20060915
  2. TACROLIMUS [Suspect]
     Indication: RHEUMATOID ARTHRITIS
     Dosage: 1 MG, UID/QD, ORAL, 1.5 MG, UID/QD, ORAL, 2 MG, UID/QD, ORAL
     Route: 048
     Dates: start: 20060916, end: 20061116
  3. TACROLIMUS [Suspect]
     Indication: RHEUMATOID ARTHRITIS
     Dosage: 1 MG, UID/QD, ORAL, 1.5 MG, UID/QD, ORAL, 2 MG, UID/QD, ORAL
     Route: 048
     Dates: start: 20061117, end: 20061208
  4. PREDNISOLONE [Concomitant]
  5. PREDNISOLONE [Concomitant]
  6. RELIFEN [Concomitant]
  7. RISEDRONATE SODIUM [Concomitant]
  8. LIVALO (ITAVASTATIN CALCIUM) [Concomitant]
  9. AMLODIPINE BESYLATE [Concomitant]
  10. MARZULENE S (LEVOGLUTAMIDE, SODIUM GUALENATE) [Concomitant]
  11. EUGLOCON [Concomitant]
  12. GLYCORAN (METFORMIN HYDROCHLORIDE) [Concomitant]
  13. BASN (VOGLIBOSE) [Concomitant]

REACTIONS (3)
  - CONDITION AGGRAVATED [None]
  - INTERSTITIAL LUNG DISEASE [None]
  - LUNG NEOPLASM MALIGNANT [None]
